FAERS Safety Report 4536215-1 (Version None)
Quarter: 2004Q4

REPORT INFORMATION
  Report Type: 
  Country: None (occurrence: None)
  Receive Date: 20041223
  Receipt Date: 20041217
  Transmission Date: 20050328
  Serious: Yes (Hospitalization)
  Sender: FDA-Public Use
  Company Number: FR-GLAXOSMITHKLINE-B0362322A

PATIENT
  Age: 79 Year
  Sex: Male

DRUGS (1)
  1. AUGMENTIN '125' [Suspect]
     Indication: BRONCHOPNEUMOPATHY
     Route: 042
     Dates: start: 20041005, end: 20041005

REACTIONS (3)
  - JARISCH-HERXHEIMER REACTION [None]
  - RASH MACULO-PAPULAR [None]
  - SEPTIC SHOCK [None]
